FAERS Safety Report 7395520-4 (Version None)
Quarter: 2011Q1

REPORT INFORMATION
  Report Type: 
  Country: None (occurrence: None)
  Receive Date: 20110325
  Receipt Date: 20110310
  Transmission Date: 20110831
  Serious: Yes (Hospitalization, Other)
  Sender: FDA-Public Use
  Company Number: 2011MA002508

PATIENT
  Age: 8 Year
  Sex: Male

DRUGS (19)
  1. CLONIDINE HYDROCHLORIDE [Suspect]
     Dosage: IV
     Route: 042
     Dates: start: 20110218, end: 20110219
  2. PAREGORIC LIQUID USP (ALPHARMA) (PAREGORIC) [Suspect]
     Dosage: IV
     Route: 042
     Dates: start: 20110213, end: 20110222
  3. DISOPRIVAN (NO PREF. NAME) [Suspect]
     Dosage: IV
     Route: 042
     Dates: start: 20110213, end: 20110216
  4. NORADRENALIN [Concomitant]
  5. VANCOMYCIN [Concomitant]
  6. LASIX [Concomitant]
  7. CLINDAMYCIN HCL [Concomitant]
  8. KETALAR [Concomitant]
  9. FLOXAPEN (FLUCLOXACILLIN SODIUM) [Suspect]
     Dosage: 1000 MG; TID; IV
     Route: 042
     Dates: start: 20110218
  10. CEPROTIN [Concomitant]
  11. ANEXATE [Concomitant]
  12. ACICLOVIR [Concomitant]
  13. NEXIUM [Concomitant]
  14. ROCEPHIN [Suspect]
     Dosage: 100 MG/KG; QD; PO
     Route: 048
     Dates: start: 20110213, end: 20110218
  15. LEXOTANIL (BROMAZEPAM) [Suspect]
     Dosage: 1.5 MG; QD; IV
     Route: 042
     Dates: start: 20110223
  16. MERONEM [Concomitant]
  17. FENTANYL [Concomitant]
  18. DORMICUM [Concomitant]
  19. DOBUTAMIN [Concomitant]

REACTIONS (9)
  - RENAL FAILURE ACUTE [None]
  - INFECTION [None]
  - STREPTOCOCCAL SEPSIS [None]
  - VASOSPASM [None]
  - SEPTIC SHOCK [None]
  - COMA [None]
  - VASCULITIS [None]
  - ENCEPHALOPATHY [None]
  - HAEMODIALYSIS [None]
